FAERS Safety Report 9787527 (Version 2)
Quarter: 2014Q2

REPORT INFORMATION
  Report Type: Report from Study
  Country: MX (occurrence: MX)
  Receive Date: 20131230
  Receipt Date: 20140623
  Transmission Date: 20141212
  Serious: Yes (Other)
  Sender: FDA-Public Use
  Company Number: MX-ORION CORPORATION ORION PHARMA-ENTC2013-0482

PATIENT
  Age: 86 Year
  Sex: Male

DRUGS (6)
  1. STALEVO [Suspect]
     Indication: PARKINSON^S DISEASE
     Dosage: STRENGTH: 50/12.5/200 MG
     Route: 048
     Dates: start: 201204, end: 201205
  2. STALEVO [Suspect]
     Dosage: STRENGTH: 100/25/200 MG
     Route: 065
     Dates: start: 201309
  3. STALEVO [Suspect]
     Dosage: STRENGTH: 100/25/200 MG
     Route: 048
  4. STALEVO [Suspect]
     Dosage: 100 MG IN MORNING,(STRENGTH: 100/25/200 MG), 50 MG IN AFTERNONN, (STRENGTH: 50/12.5/200 MG)
     Route: 048
  5. LEVODOPA [Suspect]
     Route: 065
  6. HIPOKINON [Concomitant]
     Indication: PARKINSON^S DISEASE
     Route: 065
     Dates: start: 201309

REACTIONS (14)
  - Intentional product misuse [Not Recovered/Not Resolved]
  - Drug intolerance [Not Recovered/Not Resolved]
  - Dyspepsia [Not Recovered/Not Resolved]
  - Abdominal pain upper [Not Recovered/Not Resolved]
  - Muscle spasms [Unknown]
  - Nasopharyngitis [Unknown]
  - Anxiety [Not Recovered/Not Resolved]
  - Slow speech [Not Recovered/Not Resolved]
  - Insomnia [Not Recovered/Not Resolved]
  - Chromaturia [Not Recovered/Not Resolved]
  - Herpes zoster [Recovered/Resolved]
  - Constipation [Not Recovered/Not Resolved]
  - Feeling hot [Recovered/Resolved]
  - Feeling cold [Not Recovered/Not Resolved]
